FAERS Safety Report 15053008 (Version 2)
Quarter: 2018Q3

REPORT INFORMATION
  Report Type: Spontaneous
  Country: US (occurrence: US)
  Receive Date: 20180622
  Receipt Date: 20180813
  Transmission Date: 20181010
  Serious: Yes (Hospitalization)
  Sender: FDA-Public Use
  Company Number: US-VIFOR (INTERNATIONAL) INC.-VIT-2018-06052

PATIENT
  Sex: Female

DRUGS (9)
  1. VELTASSA [Suspect]
     Active Substance: PATIROMER
     Indication: HYPERKALAEMIA
     Route: 048
     Dates: start: 201803
  2. FARXIGA [Concomitant]
     Active Substance: DAPAGLIFLOZIN PROPANEDIOL
  3. METFORMIN HYDROCHLORIDE. [Concomitant]
     Active Substance: METFORMIN HYDROCHLORIDE
  4. FOLIC ACID. [Concomitant]
     Active Substance: FOLIC ACID
  5. AMLODIPINE BESILATE [Concomitant]
     Active Substance: AMLODIPINE BESYLATE
  6. CHLORTALIDONE [Concomitant]
     Active Substance: CHLORTHALIDONE
  7. CIMZIA [Concomitant]
     Active Substance: CERTOLIZUMAB PEGOL
  8. ATENOLOL. [Concomitant]
     Active Substance: ATENOLOL
  9. TRAMADOL HYDROCHLORIDE. [Concomitant]
     Active Substance: TRAMADOL HYDROCHLORIDE

REACTIONS (3)
  - Cast application [Unknown]
  - Unevaluable event [Unknown]
  - Hyperkalaemia [Unknown]

NARRATIVE: CASE EVENT DATE: 2018
